FAERS Safety Report 13503217 (Version 1)
Quarter: 2017Q2

REPORT INFORMATION
  Report Type: Spontaneous
  Country: US (occurrence: US)
  Receive Date: 20170501
  Receipt Date: 20170501
  Transmission Date: 20170830
  Serious: No
  Sender: FDA-Public Use
  Company Number: None

PATIENT
  Age: 8 Year
  Sex: Male
  Weight: 27 kg

DRUGS (1)
  1. DIVALPROEX SODIUM. [Suspect]
     Active Substance: DIVALPROEX SODIUM
     Indication: PARTIAL SEIZURES
     Route: 048
     Dates: start: 20170221

REACTIONS (2)
  - Product quality issue [None]
  - Throat irritation [None]

NARRATIVE: CASE EVENT DATE: 20170329
